FAERS Safety Report 5192197-3 (Version None)
Quarter: 2006Q4

REPORT INFORMATION
  Report Type: 
  Country: None (occurrence: None)
  Receive Date: 20061220
  Receipt Date: 20061207
  Transmission Date: 20070319
  Serious: Yes (Hospitalization, Other)
  Sender: FDA-Public Use
  Company Number: 2006142654

PATIENT
  Age: 74 Year
  Sex: Male
  Weight: 52 kg

DRUGS (4)
  1. CLINDAMYCIN PHOSPHATE [Suspect]
     Indication: PNEUMONIA
     Dosage: 600 MG (300 MG, 2 IN 1 D), INTRAVENOUS
     Route: 042
     Dates: start: 20061113, end: 20061115
  2. UNASYN [Suspect]
     Indication: PNEUMONIA
     Dosage: 6 GRAM (3 GRAM, 2 IN 1 D), INTRAVENOUS
     Route: 042
     Dates: start: 20061109, end: 20061112
  3. MEROPEN           (MEROPENEM) [Concomitant]
  4. FAMOTIDINE [Concomitant]

REACTIONS (6)
  - CHOLANGITIS ACUTE [None]
  - CHOLESTASIS [None]
  - CONDITION AGGRAVATED [None]
  - DRUG INEFFECTIVE [None]
  - LIVER DISORDER [None]
  - PNEUMONIA [None]
